FAERS Safety Report 9469691 (Version 5)
Quarter: 2018Q3

REPORT INFORMATION
  Report Type: Report from Study
  Country: LT (occurrence: LT)
  Receive Date: 20130822
  Receipt Date: 20180927
  Transmission Date: 20181010
  Serious: Yes (Hospitalization)
  Sender: FDA-Public Use
  Company Number: LT-JNJFOC-20130810102

PATIENT
  Age: 19 Year
  Sex: Female
  Weight: 55.1 kg

DRUGS (15)
  1. GOLIMUMAB [Suspect]
     Active Substance: GOLIMUMAB
     Indication: JUVENILE IDIOPATHIC ARTHRITIS
     Dosage: WEEK 100
     Route: 058
     Dates: start: 20131114
  2. METHOTREXATE. [Suspect]
     Active Substance: METHOTREXATE
     Indication: JUVENILE IDIOPATHIC ARTHRITIS
     Route: 048
     Dates: start: 20110219
  3. BENZYLPENICILLIN SODIUM [Concomitant]
     Active Substance: PENICILLIN G SODIUM
     Route: 042
     Dates: start: 20130816, end: 20130819
  4. MESALAZINE [Concomitant]
     Active Substance: MESALAMINE
     Route: 048
     Dates: start: 20140416
  5. AMOXICILLIN. [Concomitant]
     Active Substance: AMOXICILLIN
     Indication: TONSILLITIS
     Route: 048
     Dates: start: 20120707, end: 20120712
  6. PREDNISOLONE. [Concomitant]
     Active Substance: PREDNISOLONE
     Route: 048
     Dates: start: 20140416
  7. ADALIMUMAB [Concomitant]
     Active Substance: ADALIMUMAB
     Route: 058
     Dates: start: 20140429
  8. GOLIMUMAB [Suspect]
     Active Substance: GOLIMUMAB
     Indication: JUVENILE IDIOPATHIC ARTHRITIS
     Route: 058
     Dates: start: 20111215
  9. GOLIMUMAB [Suspect]
     Active Substance: GOLIMUMAB
     Indication: JUVENILE IDIOPATHIC ARTHRITIS
     Dosage: WEEK 96
     Route: 058
  10. ACIDUM FOLICUM [Concomitant]
     Active Substance: FOLIC ACID
     Indication: PROPHYLAXIS
     Route: 048
     Dates: start: 20110219
  11. CEFAZOLINUM [Concomitant]
     Route: 058
     Dates: start: 20130821, end: 20130826
  12. PREDNISOLONE. [Concomitant]
     Active Substance: PREDNISOLONE
     Route: 048
     Dates: start: 20131207, end: 20140416
  13. NIMESULIDE [Concomitant]
     Active Substance: NIMESULIDE
     Indication: PYREXIA
     Route: 048
     Dates: start: 20111109, end: 20111110
  14. GOLIMUMAB [Suspect]
     Active Substance: GOLIMUMAB
     Indication: JUVENILE IDIOPATHIC ARTHRITIS
     Route: 058
     Dates: start: 20120503
  15. GOLIMUMAB [Suspect]
     Active Substance: GOLIMUMAB
     Indication: JUVENILE IDIOPATHIC ARTHRITIS
     Route: 058
     Dates: start: 20130725

REACTIONS (1)
  - Peritonsillar abscess [Recovered/Resolved]

NARRATIVE: CASE EVENT DATE: 20130816
